FAERS Safety Report 10923965 (Version 1)
Quarter: 2015Q1

REPORT INFORMATION
  Report Type: Spontaneous
  Country: US (occurrence: None)
  Receive Date: 20150316
  Receipt Date: 20150316
  Transmission Date: 20150721
  Serious: No
  Sender: FDA-Public Use
  Company Number: None

PATIENT
  Age: 34 Year
  Sex: Male
  Weight: 94.35 kg

DRUGS (28)
  1. ALPRAZOLAM. [Concomitant]
     Active Substance: ALPRAZOLAM
  2. ENSURE [Concomitant]
     Active Substance: AMINO ACIDS\DEXTROSE\ELECTROLYTES NOS\SOYBEAN OIL\VITAMINS
  3. RANITIDINE [Concomitant]
     Active Substance: RANITIDINE\RANITIDINE HYDROCHLORIDE
  4. ADDERALL [Concomitant]
     Active Substance: AMPHETAMINE ASPARTATE\AMPHETAMINE SULFATE\DEXTROAMPHETAMINE SACCHARATE\DEXTROAMPHETAMINE SULFATE
  5. FLUTICASONE [Concomitant]
     Active Substance: FLUTICASONE\FLUTICASONE PROPIONATE
  6. VOLTAREN [Concomitant]
     Active Substance: DICLOFENAC SODIUM
  7. PANTOPRAZOLE [Concomitant]
     Active Substance: PANTOPRAZOLE SODIUM
  8. FETZIMA [Concomitant]
     Active Substance: LEVOMILNACIPRAN HYDROCHLORIDE
  9. OXYBUTIN [Concomitant]
     Active Substance: OXYBUTYNIN
  10. GABAPENTIN. [Concomitant]
     Active Substance: GABAPENTIN
  11. FOLIC ACID. [Concomitant]
     Active Substance: FOLIC ACID
  12. BENZTROPINE [Concomitant]
     Active Substance: BENZTROPINE
  13. ALPRAZOLAM. [Concomitant]
     Active Substance: ALPRAZOLAM
  14. FUROSEMIDE. [Concomitant]
     Active Substance: FUROSEMIDE
  15. BACLOFEN. [Concomitant]
     Active Substance: BACLOFEN
  16. TIZANIDINE HCL [Concomitant]
     Active Substance: TIZANIDINE HYDROCHLORIDE
  17. ORPHENADRINE [Concomitant]
     Active Substance: ORPHENADRINE
  18. HUMIRA [Suspect]
     Active Substance: ADALIMUMAB
     Indication: AUTOIMMUNE ARTHRITIS
     Dosage: HUMIRA INJECTION PEN EVERY OTHER WEEK INTO THE MUSCLE
     Route: 030
  19. VASCEPA [Concomitant]
     Active Substance: ETHYL ICOSAPENTATE
  20. NABUMETONE. [Concomitant]
     Active Substance: NABUMETONE
  21. HUMIRA [Concomitant]
     Active Substance: ADALIMUMAB
  22. LORATIDINE [Concomitant]
     Active Substance: LORATADINE
  23. VITAMIN D [Concomitant]
     Active Substance: CHOLECALCIFEROL
  24. GLYCOPYRRATE [Concomitant]
  25. CHOLESTYRAMINE. [Concomitant]
     Active Substance: CHOLESTYRAMINE
  26. SIMVASTATIN. [Concomitant]
     Active Substance: SIMVASTATIN
  27. OXYCODONE [Concomitant]
     Active Substance: OXYCODONE
  28. LIDOCAINE. [Concomitant]
     Active Substance: LIDOCAINE

REACTIONS (1)
  - Hyperhidrosis [None]
